FAERS Safety Report 14632205 (Version 3)
Quarter: 2018Q2

REPORT INFORMATION
  Report Type: Spontaneous
  Country: JP (occurrence: JP)
  Receive Date: 20180313
  Receipt Date: 20180416
  Transmission Date: 20180711
  Serious: Yes (Death, Life-Threatening)
  Sender: FDA-Public Use
  Company Number: JP-ALLERGAN-1813661US

PATIENT
  Age: 69 Year
  Sex: Male

DRUGS (2)
  1. SHINLUCK [Concomitant]
     Active Substance: SODIUM PICOSULFATE
     Dosage: 10 GTT, QHS
     Dates: end: 20180224
  2. LINACLOTIDE - BP [Suspect]
     Active Substance: LINACLOTIDE
     Indication: IRRITABLE BOWEL SYNDROME
     Dosage: 0.5 MG, QD
     Route: 048
     Dates: start: 20180221, end: 20180224

REACTIONS (3)
  - Gastrointestinal haemorrhage [Fatal]
  - Hepatic encephalopathy [Recovered/Resolved]
  - Hyperammonaemia [Recovered/Resolved]

NARRATIVE: CASE EVENT DATE: 20180224
